FAERS Safety Report 5411597-7 (Version None)
Quarter: 2007Q3

REPORT INFORMATION
  Report Type: 
  Country: None (occurrence: None)
  Receive Date: 20070810
  Receipt Date: 20070802
  Transmission Date: 20080115
  Serious: Yes (Hospitalization)
  Sender: FDA-Public Use
  Company Number: NL-PFIZER INC-2007057557

PATIENT
  Age: 30 Year
  Sex: Female

DRUGS (4)
  1. FRAGMIN [Suspect]
     Indication: DEEP VEIN THROMBOSIS
     Dosage: TEXT:200 IE/KG
     Route: 042
     Dates: start: 20070424, end: 20070425
  2. FRAXODI [Suspect]
     Indication: DEEP VEIN THROMBOSIS
     Route: 042
     Dates: start: 20070423, end: 20070424
  3. COUMADIN [Concomitant]
  4. CONTRACEPTIVE, UNSPECIFIED [Concomitant]

REACTIONS (3)
  - ERYTHEMA [None]
  - INJECTION SITE REACTION [None]
  - OEDEMA PERIPHERAL [None]
